FAERS Safety Report 7655982-1 (Version None)
Quarter: 2011Q3

REPORT INFORMATION
  Report Type: 
  Country: None (occurrence: None)
  Receive Date: 20110804
  Receipt Date: 20110802
  Transmission Date: 20111222
  Serious: Yes (Hospitalization)
  Sender: FDA-Public Use
  Company Number: BE-ROCHE-701083

PATIENT
  Sex: Female
  Weight: 50 kg

DRUGS (5)
  1. CAPECITABINE [Suspect]
     Indication: RECTAL CANCER
     Dosage: EVENING DOSE; LAST DOSE PRIOR TO SAE: 18 MAY 2010
     Route: 048
     Dates: start: 20100407
  2. OXALIPLATIN [Suspect]
     Indication: RECTAL CANCER
     Dosage: LAST DOSE PRIOR TO SAE: 05 MAY 2010.
     Route: 042
     Dates: start: 20100407
  3. DURAGESIC-100 [Concomitant]
     Indication: PAIN
     Dosage: SCHEDULE: 1 PATCH EVERY 3 WEEKS
     Dates: start: 20100507, end: 20100711
  4. MS DIRECT [Concomitant]
     Indication: PAIN
     Dosage: AS NEEDED (AVERAGE 31 DAY)
     Route: 048
     Dates: start: 20100507, end: 20100711
  5. MOVIPREP [Concomitant]
     Indication: CONSTIPATION
     Dosage: DOSE: WHEN NEEDED
     Dates: start: 20100405, end: 20100421

REACTIONS (4)
  - RADIATION INJURY [None]
  - INFECTION [None]
  - GASTROINTESTINAL DISORDER [None]
  - RENAL FAILURE ACUTE [None]
